FAERS Safety Report 16269227 (Version 1)
Quarter: 2019Q2

REPORT INFORMATION
  Report Type: Spontaneous
  Country: US (occurrence: US)
  Receive Date: 20190502
  Receipt Date: 20190502
  Transmission Date: 20190711
  Serious: Yes (Hospitalization)
  Sender: FDA-Public Use
  Company Number: None

PATIENT
  Age: 36 Year
  Sex: Male

DRUGS (4)
  1. HUMIRA [Suspect]
     Active Substance: ADALIMUMAB
     Indication: CROHN^S DISEASE
     Dosage: ?          OTHER FREQUENCY:EVERY 14 DAYS;?
     Route: 058
     Dates: start: 20140415
  2. MUPIROCIN OINTMENT 2% [Concomitant]
     Active Substance: MUPIROCIN
     Dates: start: 20190221, end: 20190302
  3. METHOTREXATE 2.5 MG TABLETS [Concomitant]
     Active Substance: METHOTREXATE
     Dates: start: 20190221, end: 20190325
  4. PREDNISONE TABLET 5MG [Concomitant]
     Dates: start: 20190221

REACTIONS (1)
  - Crohn^s disease [None]

NARRATIVE: CASE EVENT DATE: 20190501
